FAERS Safety Report 15733292 (Version 30)
Quarter: 2023Q2

REPORT INFORMATION
  Report Type: Other
  Country: DE (occurrence: DE)
  Receive Date: 20181218
  Receipt Date: 20230501
  Transmission Date: 20230722
  Serious: Yes (Hospitalization, Other)
  Sender: FDA-Public Use
  Company Number: DE-ROCHE-2097781

PATIENT
  Age: 46 Year
  Sex: Female

DRUGS (20)
  1. COMIRNATY [Suspect]
     Active Substance: TOZINAMERAN
     Indication: COVID-19 immunisation
     Route: 065
     Dates: start: 20210118
  2. COMIRNATY [Suspect]
     Active Substance: TOZINAMERAN
     Route: 065
     Dates: start: 20210213
  3. COMIRNATY [Suspect]
     Active Substance: TOZINAMERAN
     Dosage: COVID-19 BOOSTER VACCINE WITH BIONTECH ON 01/SEP/2021
     Route: 065
     Dates: start: 202103
  4. OCREVUS [Suspect]
     Active Substance: OCRELIZUMAB
     Indication: Relapsing-remitting multiple sclerosis
     Route: 042
     Dates: start: 20180320, end: 20180320
  5. OCREVUS [Suspect]
     Active Substance: OCRELIZUMAB
     Route: 042
     Dates: start: 20180404, end: 20180404
  6. OCREVUS [Suspect]
     Active Substance: OCRELIZUMAB
     Route: 042
     Dates: start: 20181005
  7. OCREVUS [Suspect]
     Active Substance: OCRELIZUMAB
     Route: 042
     Dates: start: 20190410
  8. OCREVUS [Suspect]
     Active Substance: OCRELIZUMAB
     Route: 042
     Dates: start: 20200427
  9. OCREVUS [Suspect]
     Active Substance: OCRELIZUMAB
     Route: 042
     Dates: start: 20201026
  10. OCREVUS [Suspect]
     Active Substance: OCRELIZUMAB
     Route: 042
     Dates: start: 20210426
  11. MODERNA COVID-19 VACCINE [Suspect]
     Active Substance: ELASOMERAN
     Indication: COVID-19 immunisation
     Route: 065
     Dates: start: 20220217
  12. REMDESIVIR [Suspect]
     Active Substance: REMDESIVIR
     Indication: Dyspnoea
     Route: 042
     Dates: start: 20220410, end: 20220414
  13. ESTRIFAM [Concomitant]
  14. OXYBUTYNIN [Concomitant]
     Active Substance: OXYBUTYNIN
     Route: 062
  15. SODIUM CHLORIDE [Concomitant]
     Active Substance: SODIUM CHLORIDE
  16. CETIRIZINE HYDROCHLORIDE [Concomitant]
     Active Substance: CETIRIZINE HYDROCHLORIDE
  17. ACETAMINOPHEN [Concomitant]
     Active Substance: ACETAMINOPHEN
  18. ESTRIOL [Concomitant]
     Active Substance: ESTRIOL
  19. VITAMIN D3 [Concomitant]
     Active Substance: CHOLECALCIFEROL
     Dosage: 20,000 IU (1X WEEKLY)
  20. LORATADINE [Concomitant]
     Active Substance: LORATADINE

REACTIONS (56)
  - Polyneuropathy [Recovered/Resolved]
  - Rash erythematous [Recovered/Resolved]
  - Inappropriate schedule of product administration [Unknown]
  - Fatigue [Recovered/Resolved]
  - Tongue exfoliation [Recovered/Resolved]
  - Drug ineffective [Unknown]
  - Infusion related reaction [Recovered/Resolved]
  - Blood immunoglobulin G decreased [Not Recovered/Not Resolved]
  - Gait disturbance [Recovered/Resolved]
  - SARS-CoV-2 antibody test negative [Not Recovered/Not Resolved]
  - Balance disorder [Recovered/Resolved]
  - Nail bed inflammation [Recovered/Resolved]
  - Fatigue [Recovered/Resolved]
  - Off label use [Unknown]
  - Hypoaesthesia [Recovered/Resolved]
  - Respiratory syncytial virus infection [Recovered/Resolved]
  - Rash erythematous [Unknown]
  - Gastrointestinal infection [Recovered/Resolved]
  - Optic nerve disorder [Unknown]
  - Oropharyngeal pain [Recovered/Resolved]
  - Chills [Recovered/Resolved]
  - Paraesthesia [Recovered/Resolved]
  - Muscle spasms [Recovered/Resolved]
  - Stomatitis [Recovered/Resolved]
  - Pain of skin [Recovered/Resolved]
  - Infection susceptibility increased [Unknown]
  - Sensory disturbance [Recovered/Resolved]
  - Bedridden [Unknown]
  - Influenza [Recovered/Resolved]
  - Headache [Recovered/Resolved]
  - Alopecia areata [Not Recovered/Not Resolved]
  - Abdominal pain upper [Recovered/Resolved]
  - Vitreous opacities [Not Recovered/Not Resolved]
  - Listless [Recovered/Resolved]
  - Burning sensation [Recovered/Resolved]
  - Product preparation issue [Unknown]
  - CD4 lymphocytes increased [Not Recovered/Not Resolved]
  - Macular hole [Not Recovered/Not Resolved]
  - Multiple sclerosis relapse [Unknown]
  - Urinary tract infection [Recovered/Resolved]
  - T-lymphocyte count increased [Not Recovered/Not Resolved]
  - Drug intolerance [Unknown]
  - Erythema [Recovered/Resolved]
  - Neurodermatitis [Recovering/Resolving]
  - Medication error [Unknown]
  - Nausea [Recovered/Resolved]
  - Macular degeneration [Not Recovered/Not Resolved]
  - Alopecia [Not Recovered/Not Resolved]
  - Multiple sclerosis [Recovered/Resolved]
  - COVID-19 [Not Recovered/Not Resolved]
  - Asthenia [Recovered/Resolved]
  - Muscular weakness [Recovered/Resolved]
  - Oral disorder [Recovered/Resolved]
  - Skin burning sensation [Recovered/Resolved]
  - Alopecia universalis [Not Recovered/Not Resolved]
  - Malaise [Recovered/Resolved]

NARRATIVE: CASE EVENT DATE: 20180320
